FAERS Safety Report 18568628 (Version 3)
Quarter: 2021Q1

REPORT INFORMATION
  Report Type: Spontaneous
  Country: US (occurrence: US)
  Receive Date: 20201202
  Receipt Date: 20210226
  Transmission Date: 20210419
  Serious: Yes (Other)
  Sender: FDA-Public Use
  Company Number: US-GLAXOSMITHKLINE-US2020AMR237096

PATIENT
  Sex: Female

DRUGS (2)
  1. ZEJULA [Suspect]
     Active Substance: NIRAPARIB
     Dosage: 100 MG, QD
  2. ZEJULA [Suspect]
     Active Substance: NIRAPARIB
     Indication: OVARIAN CANCER STAGE IV
     Dosage: 200 MG, QD (A NIGHT BEFORE BED)
     Dates: start: 202006

REACTIONS (9)
  - Ageusia [Unknown]
  - Insomnia [Not Recovered/Not Resolved]
  - Dyspnoea [Unknown]
  - Decreased appetite [Unknown]
  - COVID-19 [Recovering/Resolving]
  - Fatigue [Unknown]
  - Near death experience [Unknown]
  - Nausea [Not Recovered/Not Resolved]
  - Anxiety [Unknown]
